FAERS Safety Report 12656303 (Version 1)
Quarter: 2016Q3

REPORT INFORMATION
  Report Type: Spontaneous
  Country: US (occurrence: US)
  Receive Date: 20160816
  Receipt Date: 20160816
  Transmission Date: 20161109
  Serious: No
  Sender: FDA-Public Use
  Company Number: US-PERRIGO-15US007419

PATIENT
  Age: 65 Year
  Sex: Female
  Weight: 59.86 kg

DRUGS (3)
  1. LORATADINE. [Suspect]
     Active Substance: LORATADINE
     Indication: OCULAR DISCOMFORT
     Dosage: 10 MG, SINGLE
     Route: 048
     Dates: start: 20150715, end: 20150715
  2. LORATADINE. [Suspect]
     Active Substance: LORATADINE
     Indication: PERIORBITAL OEDEMA
  3. LORATADINE. [Suspect]
     Active Substance: LORATADINE
     Indication: HYPERSENSITIVITY

REACTIONS (4)
  - Swelling face [Not Recovered/Not Resolved]
  - Drug ineffective for unapproved indication [Unknown]
  - Headache [Not Recovered/Not Resolved]
  - Erythema [Not Recovered/Not Resolved]

NARRATIVE: CASE EVENT DATE: 20150715
